FAERS Safety Report 5643623-4 (Version None)
Quarter: 2008Q1

REPORT INFORMATION
  Report Type: 
  Country: None (occurrence: None)
  Receive Date: 20080228
  Receipt Date: 20080226
  Transmission Date: 20080703
  Serious: Yes (Death, Hospitalization)
  Sender: FDA-Public Use
  Company Number: GB-SANOFI-SYNTHELABO-F01200800152

PATIENT
  Sex: Male

DRUGS (3)
  1. PAZOPANIB [Suspect]
     Dosage: DAILY, CYCLIC (NOS)
     Route: 048
     Dates: start: 20070806, end: 20070815
  2. CAPECITABINE [Suspect]
     Dosage: BID
     Route: 048
     Dates: start: 20070806, end: 20070814
  3. OXALIPLATIN [Suspect]
     Indication: COLORECTAL CANCER
     Route: 041
     Dates: start: 20070806, end: 20070806

REACTIONS (4)
  - CARDIAC ARREST [None]
  - LETHARGY [None]
  - SUDDEN DEATH [None]
  - VOMITING [None]
